FAERS Safety Report 10115811 (Version 2)
Quarter: 2015Q1

REPORT INFORMATION
  Report Type: Other
  Country: US (occurrence: US)
  Receive Date: 20140426
  Receipt Date: 20150224
  Transmission Date: 20150720
  Serious: Yes (Hospitalization, Other)
  Sender: FDA-Public Use
  Company Number: US-GSKPPD-2014GSK016422

PATIENT
  Age: 69 Year
  Sex: Female

DRUGS (7)
  1. CATAPRES [Concomitant]
     Active Substance: CLONIDINE HYDROCHLORIDE
  2. MAXZIDE [Concomitant]
     Active Substance: HYDROCHLOROTHIAZIDE\TRIAMTERENE
     Dosage: 75MG/50MG
  3. ECOTRIN [Concomitant]
     Active Substance: ASPIRIN
     Route: 048
  4. ZESTRIL [Concomitant]
     Active Substance: LISINOPRIL
     Route: 048
  5. RYTHMOL [Concomitant]
     Active Substance: PROPAFENONE HYDROCHLORIDE
     Route: 048
  6. DIGOXIN. [Concomitant]
     Active Substance: DIGOXIN
     Route: 048
  7. AVANDIA [Suspect]
     Active Substance: ROSIGLITAZONE MALEATE
     Indication: DIABETES MELLITUS
     Dosage: AVANDIA WAS NOT LISTED AMONG THE PATIENTS RECORDS REVIEWED.
     Route: 048

REACTIONS (2)
  - Cerebrovascular accident [Unknown]
  - Coronary artery disease [Recovered/Resolved]

NARRATIVE: CASE EVENT DATE: 20010424
